FAERS Safety Report 18020774 (Version 1)
Quarter: 2020Q3

REPORT INFORMATION
  Report Type: Report from Study
  Country: US (occurrence: US)
  Receive Date: 20200714
  Receipt Date: 20200714
  Transmission Date: 20201103
  Serious: Yes (Hospitalization)
  Sender: FDA-Public Use
  Company Number: US-CELGENEUS-USA-20200702576

PATIENT
  Age: 47 Year
  Sex: Female
  Weight: 56.25 kg

DRUGS (5)
  1. NAB?PACLITAXEL [Suspect]
     Active Substance: PACLITAXEL
     Indication: PANCREATIC CARCINOMA METASTATIC
     Dosage: 196 MILLIGRAM
     Route: 041
     Dates: start: 20180314, end: 20180710
  2. GEMCITABINE. [Concomitant]
     Active Substance: GEMCITABINE
     Indication: PANCREATIC CARCINOMA METASTATIC
     Dosage: 1570 MILLIGRAM
     Route: 041
     Dates: start: 20180314, end: 20180710
  3. NAB?PACLITAXEL [Suspect]
     Active Substance: PACLITAXEL
     Dosage: 196 MILLIGRAM
     Route: 041
     Dates: start: 20180717
  4. GEMCITABINE. [Concomitant]
     Active Substance: GEMCITABINE
     Dosage: 1570 MILLIGRAM
     Route: 041
     Dates: start: 20180717
  5. OMEPRAZOLE. [Concomitant]
     Active Substance: OMEPRAZOLE
     Indication: PRODUCT USED FOR UNKNOWN INDICATION
     Dosage: 40 MILLIGRAM
     Route: 065

REACTIONS (2)
  - Anaemia [Recovered/Resolved]
  - Gastrointestinal haemorrhage [Recovered/Resolved]

NARRATIVE: CASE EVENT DATE: 20180713
